FAERS Safety Report 24575563 (Version 1)
Quarter: 2024Q4

REPORT INFORMATION
  Report Type: Spontaneous
  Country: IN (occurrence: IN)
  Receive Date: 20241104
  Receipt Date: 20241104
  Transmission Date: 20250115
  Serious: Yes (Other)
  Sender: ADMA BIOLOGICS
  Company Number: IN-ADMA BIOLOGICS INC.-IN-2024ADM000165

PATIENT
  Age: 18 Year
  Sex: Female

DRUGS (2)
  1. HUMAN IMMUNOGLOBULIN G [Suspect]
     Active Substance: HUMAN IMMUNOGLOBULIN G
     Indication: Encephalitis autoimmune
     Dosage: UNK, UNK
     Route: 042
  2. METHYLPREDNISOLONE [Suspect]
     Active Substance: METHYLPREDNISOLONE
     Indication: Encephalitis autoimmune
     Dosage: UNK, UNK, 5 DOSES
     Route: 042

REACTIONS (11)
  - Pneumonia [Unknown]
  - Systemic infection [Recovered/Resolved]
  - Septic shock [Unknown]
  - Generalised tonic-clonic seizure [Unknown]
  - Encephalopathy [Unknown]
  - Restlessness [Unknown]
  - Agitation [Unknown]
  - Stereotypy [Unknown]
  - Dyskinesia [Unknown]
  - Posturing [Unknown]
  - Off label use [Unknown]
